FAERS Safety Report 9437178 (Version 1)
Quarter: 2013Q3

REPORT INFORMATION
  Report Type: Spontaneous
  Country: US (occurrence: US)
  Receive Date: 20130802
  Receipt Date: 20130802
  Transmission Date: 20140515
  Serious: Yes (Other)
  Sender: FDA-Public Use
  Company Number: PHEH2013US015914

PATIENT
  Sex: Male

DRUGS (3)
  1. TEKTURNA [Suspect]
  2. LISINOPRIL [Concomitant]
     Dosage: 10 MG
  3. DIOVAN [Concomitant]
     Dosage: 160 MG, UNK

REACTIONS (10)
  - Hepatitis C [Unknown]
  - Hyperparathyroidism secondary [Unknown]
  - Renal failure chronic [Not Recovered/Not Resolved]
  - Proteinuria [Unknown]
  - Oedema peripheral [Unknown]
  - Hypertension [Unknown]
  - Anaemia [Unknown]
  - Oropharyngeal pain [Unknown]
  - Nausea [Unknown]
  - Fatigue [Unknown]
